FAERS Safety Report 6163567-1 (Version None)
Quarter: 2009Q2

REPORT INFORMATION
  Report Type: 
  Country: None (occurrence: None)
  Receive Date: 20090420
  Receipt Date: 20090420
  Transmission Date: 20091009
  Serious: No
  Sender: FDA-Public Use
  Company Number: None

PATIENT
  Sex: Male

DRUGS (1)
  1. ISOPROTERENOL HCL [Suspect]
     Indication: CARDIAC PACEMAKER INSERTION
     Dosage: 10 MCG/MIN CONTINUOUS INFUSIO IV DRIP
     Route: 041
     Dates: start: 20090417, end: 20090417

REACTIONS (1)
  - DRUG EFFECT DECREASED [None]
